FAERS Safety Report 25447465 (Version 1)
Quarter: 2025Q2

REPORT INFORMATION
  Report Type: Spontaneous
  Country: US (occurrence: US)
  Receive Date: 20250617
  Receipt Date: 20250617
  Transmission Date: 20250716
  Serious: No
  Sender: SANOFI AVENTIS
  Company Number: US-SA-2025SA171171

PATIENT
  Sex: Female
  Weight: 125.45 kg

DRUGS (7)
  1. DUPIXENT [Suspect]
     Active Substance: DUPILUMAB
     Indication: Dermatitis atopic
     Dosage: 300 MG, QOW
     Route: 058
  2. BUDESONIDE\FORMOTEROL [Concomitant]
     Active Substance: BUDESONIDE\FORMOTEROL
  3. DULOXETINE [Concomitant]
     Active Substance: DULOXETINE
  4. SYNTHROID [Concomitant]
     Active Substance: LEVOTHYROXINE SODIUM
  5. TACROLIMUS [Concomitant]
     Active Substance: TACROLIMUS
  6. PREGABALIN [Concomitant]
     Active Substance: PREGABALIN
  7. TRAMADOL [Concomitant]
     Active Substance: TRAMADOL

REACTIONS (1)
  - Pruritus [Unknown]
